FAERS Safety Report 11215404 (Version 1)
Quarter: 2015Q2

REPORT INFORMATION
  Report Type: Spontaneous
  Country: US (occurrence: None)
  Receive Date: 20150609
  Receipt Date: 20150609
  Transmission Date: 20150821
  Serious: No
  Sender: FDA-Public Use
  Company Number: 2015ST000031

PATIENT
  Age: 67 Year
  Sex: Female
  Weight: 47.6 kg

DRUGS (14)
  1. RUCONEST [Suspect]
     Active Substance: HUMAN C1-ESTERASE INHIBITOR
     Indication: COMPLEMENT FACTOR ABNORMAL
     Route: 042
  2. STERILE WATER (WATER FOR INJECTION) [Concomitant]
  3. LIDOCAINE W/PRILOCAINE (LIDOCAINE, PRILOCAINE) [Concomitant]
  4. PREMARIN [Concomitant]
     Active Substance: ESTROGENS, CONJUGATED
  5. DIOVAN [Concomitant]
     Active Substance: VALSARTAN
  6. CLONAZEPAM (CLONAZEPAM) [Concomitant]
     Active Substance: CLONAZEPAM
  7. EPIPEN [Concomitant]
     Active Substance: EPINEPHRINE
  8. CINRYZE (COMPLEMENT C1 ESTRASE INHIBITOR) [Concomitant]
  9. HYDROMORPHONE (HYDROMORPHONE) [Concomitant]
     Active Substance: HYDROMORPHONE
  10. HYDROCHLOROTHIAZIDE (HYDROCHLOROTHIAZIDE) [Concomitant]
     Active Substance: HYDROCHLOROTHIAZIDE
  11. HEPARIN SODIUM CHLORIDE (HEPARIN SODIUM) [Concomitant]
  12. DIPHENHYDRAMINE (DIPHENHYDRAMINE) [Concomitant]
     Active Substance: DIPHENHYDRAMINE
  13. AMLODIPINE [Concomitant]
     Active Substance: AMLODIPINE BESYLATE
  14. HYDROXYZINE (HYDROXYZINE) [Concomitant]
     Active Substance: HYDROXYZINE HYDROCHLORIDE

REACTIONS (1)
  - Abdominal distension [None]
